FAERS Safety Report 8398506-6 (Version None)
Quarter: 2012Q2

REPORT INFORMATION
  Report Type: 
  Country: None (occurrence: None)
  Receive Date: 20120531
  Receipt Date: 20120524
  Transmission Date: 20120825
  Serious: Yes (Death)
  Sender: FDA-Public Use
  Company Number: JP-ASTRAZENECA-2012SE34147

PATIENT
  Age: 20 Year
  Sex: Female

DRUGS (21)
  1. AMBISOME [Suspect]
     Indication: FEBRILE NEUTROPENIA
     Route: 065
     Dates: start: 20111001, end: 20111015
  2. COTRIM [Concomitant]
     Indication: PNEUMOCYSTIS JIROVECI PNEUMONIA
     Route: 048
     Dates: start: 20110911, end: 20110920
  3. GRAN [Concomitant]
     Indication: NEUTROPENIA
     Dates: start: 20110922, end: 20111020
  4. LANSOPRAZOLE [Concomitant]
     Indication: GASTROOESOPHAGEAL REFLUX PROPHYLAXIS
     Dates: start: 20110929, end: 20111020
  5. NEUART [Concomitant]
     Indication: ANTITHROMBIN III DECREASED
     Dates: start: 20111019, end: 20111019
  6. FLUDARA [Suspect]
     Route: 065
     Dates: start: 20110913
  7. MORPHINE HYDROCHLORIDE HYDRATE [Concomitant]
     Indication: STOMATITIS
     Dates: start: 20110927, end: 20111019
  8. MEROPENEM [Suspect]
     Indication: FEBRILE NEUTROPENIA
     Route: 042
     Dates: start: 20110924, end: 20111015
  9. VANCOMYCIN [Concomitant]
     Indication: FEBRILE NEUTROPENIA
     Dates: start: 20110927, end: 20111017
  10. CIPROFLOXACIN [Concomitant]
     Indication: FEBRILE NEUTROPENIA
     Dates: start: 20111015, end: 20111018
  11. SANDIMMUNE [Concomitant]
     Indication: PROPHYLAXIS AGAINST GRAFT VERSUS HOST DISEASE
     Dates: start: 20110920, end: 20111017
  12. INOVAN [Concomitant]
     Indication: VENOOCCLUSIVE LIVER DISEASE
     Dates: start: 20111009, end: 20111020
  13. ALKERAN [Suspect]
     Route: 065
     Dates: start: 20110913
  14. CONCENTRATED HUMAN RED BLOOD CELLS [Concomitant]
     Dates: start: 20110423, end: 20110423
  15. ACICLOVIN [Concomitant]
     Indication: HERPES ZOSTER
     Route: 048
     Dates: start: 20110913, end: 20110929
  16. ANTI-THYMOCYTE GLOBULIN RABBIT NOS [Suspect]
     Route: 065
     Dates: start: 20110913
  17. CONCENTRATED HUMAN BLOOD PLATELET [Concomitant]
     Dates: start: 20110505, end: 20110505
  18. HEPAGUMIN [Concomitant]
     Indication: VENOOCCLUSIVE LIVER DISEASE
     Dates: start: 20110912, end: 20110926
  19. LASIX [Concomitant]
     Indication: VENOOCCLUSIVE LIVER DISEASE
     Dates: start: 20111001, end: 20111019
  20. LEVOFLOXACIN [Concomitant]
     Indication: FEBRILE NEUTROPENIA
     Dates: start: 20111018, end: 20111020
  21. ALBUMIN (HUMAN) [Concomitant]
     Indication: HYPOALBUMINAEMIA
     Dates: start: 20111019, end: 20111019

REACTIONS (1)
  - HEPATIC FUNCTION ABNORMAL [None]
